FAERS Safety Report 8091821-5 (Version None)
Quarter: 2012Q1

REPORT INFORMATION
  Report Type: 
  Country: None (occurrence: None)
  Receive Date: 20120129
  Receipt Date: 20111121
  Transmission Date: 20120608
  Serious: No
  Sender: FDA-Public Use
  Company Number: US-ABBOTT-11P-163-0876632-00

PATIENT
  Age: 48 Year
  Sex: Female

DRUGS (13)
  1. PROPRANOLOL [Concomitant]
     Indication: MIGRAINE
  2. VITAMIN TAB [Concomitant]
     Indication: PRODUCT USED FOR UNKNOWN INDICATION
     Dosage: DAILY
  3. PROZAC [Concomitant]
     Indication: DEPRESSION
  4. FIORICET [Concomitant]
     Indication: MIGRAINE
     Dosage: AS NEEDED UP TO FOUR TIMES DAILY
  5. IBUPROFEN [Concomitant]
     Indication: SWELLING
  6. FLUTICASONE PROPIONATE [Concomitant]
     Indication: HYPERSENSITIVITY
     Dosage: 1 PUFF PER NOSTRIL BID
     Route: 045
  7. VITAMIN B-12 [Concomitant]
     Indication: PRODUCT USED FOR UNKNOWN INDICATION
  8. FISH OIL [Concomitant]
     Indication: PRODUCT USED FOR UNKNOWN INDICATION
     Dosage: DAILY
  9. PERCOCET [Concomitant]
     Indication: ARTHRALGIA
     Dosage: 7.5-325MG AS NEEDED THREE TIMES DAILY
  10. HUMIRA [Suspect]
     Indication: RHEUMATOID ARTHRITIS
     Dates: start: 20110701
  11. FOLIC ACID [Concomitant]
     Indication: PRODUCT USED FOR UNKNOWN INDICATION
  12. VITAMIN D [Concomitant]
     Indication: PRODUCT USED FOR UNKNOWN INDICATION
  13. TRAZODONE HCL [Concomitant]
     Indication: INSOMNIA
     Dosage: 50-100MG AS NEEDED EVERY NIGHT

REACTIONS (6)
  - NAUSEA [None]
  - BONE PAIN [None]
  - VENOUS INJURY [None]
  - BLOOD CHOLESTEROL INCREASED [None]
  - INJECTION SITE HAEMATOMA [None]
  - DIZZINESS [None]
